FAERS Safety Report 6048001-4 (Version None)
Quarter: 2009Q1

REPORT INFORMATION
  Report Type: 
  Country: None (occurrence: None)
  Receive Date: 20090123
  Receipt Date: 20090116
  Transmission Date: 20090719
  Serious: Yes (Other)
  Sender: FDA-Public Use
  Company Number: PHHY2008GB28399

PATIENT
  Sex: Female
  Weight: 80.5 kg

DRUGS (8)
  1. RASILEZ [Suspect]
     Indication: HYPERTENSION
     Dosage: 150 MG DAILY
     Dates: start: 20080707, end: 20081031
  2. COAPROVEL [Concomitant]
     Indication: HYPERTENSION
     Dosage: 300MG/125MG, QD
     Route: 048
  3. ATENOLOL [Concomitant]
     Indication: HYPERTENSION
     Dosage: 100 MG, QD
     Route: 048
  4. NIFEDIPINE [Concomitant]
     Indication: HYPERTENSION
     Dosage: 60MG / 30MG
     Route: 048
  5. DOXAZOSIN MESYLATE [Concomitant]
     Indication: HYPERTENSION
     Dosage: 8 MG, BID
     Route: 048
  6. ACETAMINOPHEN [Concomitant]
  7. LOPERAMIDE HCL [Concomitant]
  8. FERROUS SULPHATE [Concomitant]

REACTIONS (2)
  - BLOOD ALDOSTERONE INCREASED [None]
  - BLOOD PRESSURE INCREASED [None]
